FAERS Safety Report 8245589-X (Version None)
Quarter: 2012Q1

REPORT INFORMATION
  Report Type: 
  Country: None (occurrence: None)
  Receive Date: 20120330
  Receipt Date: 20120328
  Transmission Date: 20120608
  Serious: Yes (Other)
  Sender: FDA-Public Use
  Company Number: GB-AMGEN-GBRSP2012019702

PATIENT
  Age: 53 Year
  Sex: Female
  Weight: 116 kg

DRUGS (4)
  1. ERYTHROMYCIN ETHYLSUCCINATE [Concomitant]
     Indication: PRODUCT USED FOR UNKNOWN INDICATION
     Dosage: UNK
     Dates: start: 20120118, end: 20120125
  2. CLOBETASOL PROPIONATE [Concomitant]
     Indication: PRODUCT USED FOR UNKNOWN INDICATION
     Dosage: UNK
     Dates: start: 20120109
  3. PROLIA [Suspect]
     Indication: OSTEOPOROSIS
     Dosage: 2 DF, UNK
     Dates: end: 20111001
  4. BETAMETHASONE VALERATE [Concomitant]
     Indication: PRODUCT USED FOR UNKNOWN INDICATION
     Dosage: UNK, UNK
     Dates: start: 20111212, end: 20120109

REACTIONS (1)
  - DERMATITIS ALLERGIC [None]
